FAERS Safety Report 15101197 (Version 2)
Quarter: 2018Q3

REPORT INFORMATION
  Report Type: Report from Study
  Country: None (occurrence: ES)
  Receive Date: 20180703
  Receipt Date: 20180717
  Transmission Date: 20181010
  Serious: Yes (Other)
  Sender: FDA-Public Use
  Company Number: ES-ABBVIE-18S-144-2406889-00

PATIENT
  Age: 82 Year
  Sex: Male

DRUGS (8)
  1. MARIXINO [Concomitant]
     Indication: COGNITIVE DISORDER
     Dates: start: 201807
  2. RIVOTRIL [Concomitant]
     Active Substance: CLONAZEPAM
     Indication: PRODUCT USED FOR UNKNOWN INDICATION
     Dosage: 4 DROPS AT NIGHT
  3. DUODOPA [Suspect]
     Active Substance: CARBIDOPA\LEVODOPA
     Indication: PARKINSON^S DISEASE
     Route: 050
     Dates: start: 20101101
  4. CLOMETHIAZOLE [Concomitant]
     Active Substance: CLOMETHIAZOLE
     Indication: DISORIENTATION
  5. MEMANTINE. [Concomitant]
     Active Substance: MEMANTINE
     Indication: DISORIENTATION
  6. CLOMETHIAZOLE [Concomitant]
     Active Substance: CLOMETHIAZOLE
     Indication: RAPID EYE MOVEMENT SLEEP BEHAVIOUR DISORDER
     Dates: start: 20180529, end: 2018
  7. MEMANTINE. [Concomitant]
     Active Substance: MEMANTINE
     Indication: RAPID EYE MOVEMENT SLEEP BEHAVIOUR DISORDER
     Dates: start: 20180529, end: 2018
  8. COROPRES [Concomitant]
     Active Substance: CARVEDILOL
     Indication: PRODUCT USED FOR UNKNOWN INDICATION

REACTIONS (10)
  - Incorrect route of drug administration [Unknown]
  - Rapid eye movement sleep behaviour disorder [Recovered/Resolved]
  - Disorientation [Recovered/Resolved]
  - Disorientation [Not Recovered/Not Resolved]
  - Agitation [Not Recovered/Not Resolved]
  - Hypotension [Not Recovered/Not Resolved]
  - Cognitive disorder [Not Recovered/Not Resolved]
  - Abnormal behaviour [Not Recovered/Not Resolved]
  - Device dislocation [Unknown]
  - Off label use [Unknown]

NARRATIVE: CASE EVENT DATE: 2018
